FAERS Safety Report 23650403 (Version 1)
Quarter: 2024Q1

REPORT INFORMATION
  Report Type: Report from Study
  Country: NL (occurrence: NL)
  Receive Date: 20240320
  Receipt Date: 20240320
  Transmission Date: 20240409
  Serious: Yes (Other)
  Sender: FDA-Public Use
  Company Number: NL-ABBVIE-4266750

PATIENT
  Age: 70 Year
  Sex: Male

DRUGS (16)
  1. CARBIDOPA\LEVODOPA [Suspect]
     Active Substance: CARBIDOPA\LEVODOPA
     Indication: Parkinson^s disease
     Dosage: MD: 11.0ML CD: 3.7ML ED: 3.0ML END: 1.0ML NCD: 1.7ML?REMAINS AT 24 HOURS
     Route: 050
     Dates: start: 20200127
  2. CARBIDOPA\LEVODOPA [Suspect]
     Active Substance: CARBIDOPA\LEVODOPA
     Route: 050
  3. CARBIDOPA\LEVODOPA [Suspect]
     Active Substance: CARBIDOPA\LEVODOPA
     Dosage: MD: 11.0ML CD: 3.7ML ED: 3.0ML END: 1.0ML NCD: 1.4ML
     Route: 050
  4. CARBIDOPA\LEVODOPA [Suspect]
     Active Substance: CARBIDOPA\LEVODOPA
     Route: 050
  5. CARBIDOPA\LEVODOPA [Suspect]
     Active Substance: CARBIDOPA\LEVODOPA
     Dosage: MD: 11.0ML; CD:3.9ML/H; ED:3.0ML; NCD:1.1ML/H; END:1.0ML;
     Route: 050
     Dates: start: 20240227
  6. CARBIDOPA\LEVODOPA [Suspect]
     Active Substance: CARBIDOPA\LEVODOPA
     Dosage: CND: 1.4 ML/H?REMAINS AT 24 HOURS
     Route: 050
  7. CARBIDOPA\LEVODOPA [Suspect]
     Active Substance: CARBIDOPA\LEVODOPA
     Dosage: CND: 1.4 ML/H?REMAINS AT 16/24HOURS
     Route: 050
  8. CARBIDOPA\LEVODOPA [Suspect]
     Active Substance: CARBIDOPA\LEVODOPA
     Dosage: MD: 11.0ML CD: 3.9ML ED: 3.0ML END: 1.0ML NCD: 1.4ML?REMAINS AT 24 HOURS
     Route: 050
  9. CARBIDOPA\LEVODOPA [Suspect]
     Active Substance: CARBIDOPA\LEVODOPA
     Dosage: MD: 11.0ML CD: 3.9ML ED: 3.0ML END: 1.0ML NCD: 1.4ML
     Route: 050
     Dates: start: 20230606, end: 20240227
  10. CARBIDOPA\LEVODOPA [Suspect]
     Active Substance: CARBIDOPA\LEVODOPA
     Dosage: MD: 11.0ML CD: 3.9ML ED: 3.0ML END: 1.0ML NCD: 1.4ML?DURATION TEXT: REMAINS AT 24 HOURS
     Route: 050
     Dates: start: 20230606
  11. CARBIDOPA\LEVODOPA [Suspect]
     Active Substance: CARBIDOPA\LEVODOPA
     Dosage: CND: 1.4 ML/H
     Route: 050
  12. CARBIDOPA\LEVODOPA [Suspect]
     Active Substance: CARBIDOPA\LEVODOPA
     Dosage: CND: 1.4 ML/H?REMAINS AT 24 HOURS
     Route: 050
  13. CARBIDOPA\LEVODOPA [Suspect]
     Active Substance: CARBIDOPA\LEVODOPA
     Route: 050
  14. ROPINIROLE [Concomitant]
     Active Substance: ROPINIROLE
     Indication: Parkinson^s disease
     Dosage: FREQUENCY TEXT: ONE AT 10PM
     Route: 048
     Dates: start: 2015
  15. RIVOTRIL [Concomitant]
     Active Substance: CLONAZEPAM
     Indication: Hallucination
     Dosage: 0.5MG?FREQUENCY TEXT: ONE AT 10PM
     Route: 048
     Dates: start: 2018
  16. BENSERAZIDE HYDROCHLORIDE\LEVODOPA [Concomitant]
     Active Substance: BENSERAZIDE HYDROCHLORIDE\LEVODOPA
     Indication: Parkinson^s disease
     Dosage: FREQUENCY TEXT: TWO AT 10PM
     Route: 048
     Dates: start: 2005

REACTIONS (37)
  - Visual impairment [Not Recovered/Not Resolved]
  - Muscle rigidity [Not Recovered/Not Resolved]
  - Restlessness [Recovered/Resolved]
  - Blood catecholamines increased [Not Recovered/Not Resolved]
  - On and off phenomenon [Not Recovered/Not Resolved]
  - Gait disturbance [Not Recovered/Not Resolved]
  - Stoma site inflammation [Recovered/Resolved]
  - Dyskinesia [Not Recovered/Not Resolved]
  - Stoma site erythema [Recovered/Resolved]
  - Stoma site discharge [Recovered/Resolved]
  - Fall [Not Recovered/Not Resolved]
  - Hallucination [Not Recovered/Not Resolved]
  - Unevaluable event [Recovered/Resolved]
  - Memory impairment [Not Recovered/Not Resolved]
  - Pollakiuria [Recovered/Resolved]
  - Speech disorder [Not Recovered/Not Resolved]
  - Gait disturbance [Not Recovered/Not Resolved]
  - Eating disorder [Recovering/Resolving]
  - Stoma site reaction [Recovered/Resolved]
  - Unevaluable event [Not Recovered/Not Resolved]
  - Loss of personal independence in daily activities [Not Recovered/Not Resolved]
  - Gait inability [Not Recovered/Not Resolved]
  - Stoma site pain [Not Recovered/Not Resolved]
  - Inappropriate schedule of product administration [Unknown]
  - Stoma site reaction [Not Recovered/Not Resolved]
  - Malaise [Unknown]
  - Confusional state [Not Recovered/Not Resolved]
  - Stoma site haemorrhage [Not Recovered/Not Resolved]
  - Initial insomnia [Not Recovered/Not Resolved]
  - Aphasia [Not Recovered/Not Resolved]
  - Skin wound [Not Recovered/Not Resolved]
  - Sitting disability [Not Recovered/Not Resolved]
  - Restless legs syndrome [Not Recovered/Not Resolved]
  - Poor quality sleep [Recovering/Resolving]
  - Walking aid user [Not Recovered/Not Resolved]
  - Disturbance in attention [Not Recovered/Not Resolved]
  - Judgement impaired [Not Recovered/Not Resolved]

NARRATIVE: CASE EVENT DATE: 20230101
